FAERS Safety Report 4487426-5 (Version None)
Quarter: 2004Q4

REPORT INFORMATION
  Report Type: 
  Country: None (occurrence: None)
  Receive Date: 20041027
  Receipt Date: 20041006
  Transmission Date: 20050328
  Serious: Yes (Other)
  Sender: FDA-Public Use
  Company Number: US-MERCK-0410USA00704

PATIENT
  Age: 79 Year
  Sex: Male

DRUGS (3)
  1. COSOPT [Suspect]
     Indication: GLAUCOMA
     Route: 047
     Dates: start: 19990101, end: 20030101
  2. COSOPT [Suspect]
     Route: 047
     Dates: start: 20040501
  3. [THERAPY UNSPECIFIED] [Concomitant]
     Route: 065

REACTIONS (4)
  - ACCIDENTAL OVERDOSE [None]
  - DYSGEUSIA [None]
  - INTESTINAL FUNCTIONAL DISORDER [None]
  - KERATOCONJUNCTIVITIS SICCA [None]
